FAERS Safety Report 17005183 (Version 5)
Quarter: 2022Q2

REPORT INFORMATION
  Report Type: Spontaneous
  Country: US (occurrence: US)
  Receive Date: 20191107
  Receipt Date: 20220505
  Transmission Date: 20220721
  Serious: Yes (Death, Other)
  Sender: FDA-Public Use
  Company Number: None

PATIENT
  Age: 12 Year
  Sex: Female
  Weight: 36 kg

DRUGS (1)
  1. KYMRIAH [Suspect]
     Active Substance: TISAGENLECLEUCEL
     Indication: Acute lymphocytic leukaemia
     Dosage: 11 ML, ONCE/SINGLE
     Route: 042
     Dates: start: 20191010, end: 20191010

REACTIONS (2)
  - Death [Fatal]
  - Neutropenia [Unknown]

NARRATIVE: CASE EVENT DATE: 20191019
